FAERS Safety Report 20583688 (Version 1)
Quarter: 2022Q1

REPORT INFORMATION
  Report Type: Spontaneous
  Country: US (occurrence: None)
  Receive Date: 20220311
  Receipt Date: 20220311
  Transmission Date: 20220424
  Serious: Yes (Hospitalization)
  Sender: FDA-Public Use
  Company Number: None

PATIENT
  Age: 15 Year
  Sex: Male

DRUGS (7)
  1. PULMOZYME [Suspect]
     Active Substance: DORNASE ALFA
     Indication: Cystic fibrosis
     Dates: start: 20191206
  2. CEFDINIR CAP [Concomitant]
  3. HYPERSAL [Concomitant]
  4. PULMOZYME SOL [Concomitant]
  5. SOD CHLORIDE INJ [Concomitant]
  6. SODIUM CHLORIDE [Concomitant]
  7. TRIKAFTA [Concomitant]

REACTIONS (1)
  - Dyspnoea [None]

NARRATIVE: CASE EVENT DATE: 20220306
